FAERS Safety Report 6783104-8 (Version None)
Quarter: 2010Q2

REPORT INFORMATION
  Report Type: 
  Country: None (occurrence: None)
  Receive Date: 20100622
  Receipt Date: 20100611
  Transmission Date: 20101027
  Serious: Yes (Hospitalization, Other)
  Sender: FDA-Public Use
  Company Number: US-BAYER-201024322NA

PATIENT
  Age: 55 Year
  Sex: Female

DRUGS (9)
  1. BETASERON [Suspect]
     Indication: MULTIPLE SCLEROSIS
     Route: 065
  2. METHOTREXATE [Concomitant]
     Indication: MULTIPLE SCLEROSIS
  3. FLUIDS [Concomitant]
     Indication: RENAL FAILURE ACUTE
     Route: 042
  4. ACYCLOVIR [Concomitant]
     Indication: HERPES ZOSTER
     Dosage: AT MENINGIC DOSES
  5. ROCEPHIN [Concomitant]
     Indication: ESCHERICHIA URINARY TRACT INFECTION
  6. HYZAAR [Concomitant]
  7. IMDUR [Concomitant]
     Indication: BLOOD PRESSURE MANAGEMENT
     Dosage: AS USED: 60 MG
  8. INDERAL [Concomitant]
  9. GABAPENTIN [Concomitant]

REACTIONS (12)
  - CONVULSION [None]
  - FALL [None]
  - FATIGUE [None]
  - HALLUCINATION [None]
  - HALLUCINATION, AUDITORY [None]
  - HALLUCINATION, VISUAL [None]
  - HEADACHE [None]
  - HYPERTENSIVE EMERGENCY [None]
  - MULTIPLE SCLEROSIS RELAPSE [None]
  - MUSCULAR WEAKNESS [None]
  - PAIN [None]
  - REVERSIBLE POSTERIOR LEUKOENCEPHALOPATHY SYNDROME [None]
